FAERS Safety Report 13679590 (Version 1)
Quarter: 2017Q2

REPORT INFORMATION
  Report Type: Other
  Country: FR (occurrence: FR)
  Receive Date: 20170622
  Receipt Date: 20170622
  Transmission Date: 20170830
  Serious: Yes (Hospitalization)
  Sender: FDA-Public Use
  Company Number: FR-GE HEALTHCARE LIFE SCIENCES-VISP-PR-1701S-0018

PATIENT

DRUGS (4)
  1. INEXIUM [Suspect]
     Active Substance: ESOMEPRAZOLE
     Indication: PROPHYLAXIS AGAINST GASTROINTESTINAL ULCER
     Dosage: ,
     Route: 048
     Dates: start: 201605
  2. REMIFENTANIL MYLAN [Suspect]
     Active Substance: REMIFENTANIL
     Indication: ANALGESIC THERAPY
     Dosage: ,
     Route: 042
     Dates: start: 201605
  3. PROPOFOL MYLAN [Suspect]
     Active Substance: PROPOFOL
     Indication: SEDATION
     Dosage: ,
     Route: 042
     Dates: start: 201605
  4. VISIPAQUE [Suspect]
     Active Substance: IODIXANOL
     Indication: CEREBROVASCULAR ACCIDENT
     Dosage: UNK UNK, SINGLE
     Route: 042
     Dates: start: 20160523, end: 20160523

REACTIONS (1)
  - Acute generalised exanthematous pustulosis [Recovered/Resolved]

NARRATIVE: CASE EVENT DATE: 20160525
